FAERS Safety Report 25739236 (Version 1)
Quarter: 2025Q3

REPORT INFORMATION
  Report Type: Report from Study
  Country: CA (occurrence: CA)
  Receive Date: 20250829
  Receipt Date: 20250829
  Transmission Date: 20251021
  Serious: Yes (Hospitalization)
  Sender: TAKEDA
  Company Number: CA-TAKEDA-2025TUS075014

PATIENT
  Sex: Male

DRUGS (4)
  1. VEDOLIZUMAB [Suspect]
     Active Substance: VEDOLIZUMAB
     Indication: Colitis ulcerative
  2. ROSUVASTATIN [Concomitant]
     Active Substance: ROSUVASTATIN
  3. MESALAMINE [Concomitant]
     Active Substance: MESALAMINE
  4. IRON [Concomitant]
     Active Substance: IRON
     Indication: Mineral supplementation
     Dosage: UNK UNK, QOD

REACTIONS (2)
  - Blood pressure decreased [Recovered/Resolved]
  - Malaise [Recovered/Resolved]
